FAERS Safety Report 9583534 (Version 1)
Quarter: 2013Q4

REPORT INFORMATION
  Report Type: Spontaneous
  Country: US (occurrence: US)
  Receive Date: 20131002
  Receipt Date: 20131002
  Transmission Date: 20140711
  Serious: No
  Sender: FDA-Public Use
  Company Number: US-AMGEN-USASP2013048003

PATIENT
  Age: 63 Year
  Sex: Female
  Weight: 53.06 kg

DRUGS (5)
  1. ENBREL [Suspect]
     Indication: PRODUCT USED FOR UNKNOWN INDICATION
     Dosage: 50 MG, QWK
     Route: 058
  2. GUMMI KING CALCIUM PLUS VITAMIN D [Concomitant]
     Dosage: 400 UNIT, UNK
  3. VITAMIN C + E [Concomitant]
     Dosage: UNK
  4. FISH OIL [Concomitant]
     Dosage: UNK
  5. SULFASALAZIN [Concomitant]
     Dosage: 500 MG, UNK

REACTIONS (1)
  - Bursitis [Unknown]
